FAERS Safety Report 13511070 (Version 2)
Quarter: 2017Q2

REPORT INFORMATION
  Report Type: Spontaneous
  Country: JP (occurrence: JP)
  Receive Date: 20170503
  Receipt Date: 20170508
  Transmission Date: 20170830
  Serious: Yes (Other)
  Sender: FDA-Public Use
  Company Number: PHJP2017JP014664

PATIENT
  Age: 55 Year
  Sex: Female

DRUGS (3)
  1. ANTIHUMANLYMFOCYT-GLOBULIN [Suspect]
     Active Substance: THYMOCYTE IMMUNE GLOBULIN NOS
     Indication: APLASTIC ANAEMIA
     Dosage: 3.75 MG/KG, UNK (FROM DAYS 1 TO 5)
     Route: 065
  2. CICLOSPORIN [Suspect]
     Active Substance: CYCLOSPORINE
     Indication: APLASTIC ANAEMIA
     Dosage: 6 MG/KG, UNK
     Route: 065
  3. METHYLPREDNISOLONE. [Suspect]
     Active Substance: METHYLPREDNISOLONE
     Indication: APLASTIC ANAEMIA
     Dosage: 2 MG/KG, UNK
     Route: 065

REACTIONS (9)
  - Hyperpyrexia [Recovered/Resolved]
  - Renal failure [Unknown]
  - Liver injury [Unknown]
  - Therapeutic response decreased [Unknown]
  - Respiratory failure [Recovered/Resolved]
  - Encephalitis viral [Recovered/Resolved]
  - Product use in unapproved indication [Unknown]
  - Epstein-Barr virus associated lymphoproliferative disorder [Recovered/Resolved]
  - Loss of consciousness [Unknown]
